FAERS Safety Report 16210494 (Version 1)
Quarter: 2019Q2

REPORT INFORMATION
  Report Type: Spontaneous
  Country: US (occurrence: US)
  Receive Date: 20190418
  Receipt Date: 20190418
  Transmission Date: 20190711
  Serious: No
  Sender: FDA-Public Use
  Company Number: US-SUN PHARMACEUTICAL INDUSTRIES LTD-2018US-169516

PATIENT
  Sex: Male

DRUGS (1)
  1. EXELDERM [Suspect]
     Active Substance: SULCONAZOLE NITRATE
     Indication: RASH
     Dosage: UNK
     Route: 065

REACTIONS (1)
  - Drug ineffective [Unknown]
